FAERS Safety Report 7671726-1 (Version None)
Quarter: 2011Q3

REPORT INFORMATION
  Report Type: 
  Country: None (occurrence: None)
  Receive Date: 20110809
  Receipt Date: 20110803
  Transmission Date: 20111222
  Serious: Yes (Other)
  Sender: FDA-Public Use
  Company Number: US-PFIZER INC-2011177873

PATIENT
  Sex: Female
  Weight: 61 kg

DRUGS (1)
  1. AROMASIN [Suspect]
     Indication: BREAST CANCER
     Dosage: DAILY
     Dates: start: 20090101

REACTIONS (2)
  - ARTHRALGIA [None]
  - JOINT SWELLING [None]
